FAERS Safety Report 9205115 (Version 1)
Quarter: 2013Q2

REPORT INFORMATION
  Report Type: Spontaneous
  Country: GB (occurrence: GB)
  Receive Date: 20130402
  Receipt Date: 20130402
  Transmission Date: 20140414
  Serious: Yes (Hospitalization)
  Sender: FDA-Public Use
  Company Number: GB-ELI_LILLY_AND_COMPANY-GB201303008191

PATIENT
  Age: 60 Year
  Sex: Female

DRUGS (3)
  1. ALIMTA [Suspect]
  2. CISPLATIN [Concomitant]
  3. FOLIC ACID [Concomitant]

REACTIONS (4)
  - Stomatitis [Unknown]
  - Neutropenia [Unknown]
  - Herpes virus infection [Unknown]
  - Hypophagia [Unknown]
